FAERS Safety Report 7142331-0 (Version None)
Quarter: 2010Q4

REPORT INFORMATION
  Report Type: 
  Country: None (occurrence: None)
  Receive Date: 20101207
  Receipt Date: 20101129
  Transmission Date: 20110411
  Serious: Yes (Other)
  Sender: FDA-Public Use
  Company Number: JP-PFIZER INC-2010151172

PATIENT
  Age: 73 Year
  Sex: Female

DRUGS (5)
  1. LYRICA [Suspect]
     Indication: POST HERPETIC NEURALGIA
     Dosage: 50 MG/DAY
     Route: 048
     Dates: start: 20101028
  2. LYRICA [Suspect]
     Dosage: 100 MG/DAY
  3. LYRICA [Suspect]
     Dosage: 150 MG/DAY
  4. SHAKUYAKUKANZOUTOU [Concomitant]
     Dosage: UNK
  5. CONIEL [Concomitant]
     Indication: HYPERTENSION
     Dosage: 4 MG/DAY
     Route: 048

REACTIONS (1)
  - BLOOD PRESSURE INCREASED [None]
